FAERS Safety Report 23205756 (Version 1)
Quarter: 2023Q4

REPORT INFORMATION
  Report Type: Spontaneous
  Country: US (occurrence: US)
  Receive Date: 20231120
  Receipt Date: 20231120
  Transmission Date: 20240110
  Serious: Yes (Hospitalization)
  Sender: FDA-Public Use
  Company Number: US-BRISTOL-MYERS SQUIBB COMPANY-2023-165857

PATIENT
  Age: 58 Year
  Sex: Female
  Weight: 83.2 kg

DRUGS (3)
  1. ELIQUIS [Suspect]
     Active Substance: APIXABAN
     Indication: Product used for unknown indication
  2. ULIXERTINIB [Suspect]
     Active Substance: ULIXERTINIB
     Indication: Ovarian cancer
     Route: 048
     Dates: start: 20230929
  3. ULIXERTINIB [Suspect]
     Active Substance: ULIXERTINIB
     Route: 048
     Dates: end: 20231106

REACTIONS (4)
  - Abdominal pain [Recovered/Resolved]
  - Palmar-plantar erythrodysaesthesia syndrome [Unknown]
  - Malaise [Unknown]
  - Fluid intake reduced [Unknown]

NARRATIVE: CASE EVENT DATE: 20231107
